FAERS Safety Report 4615894-4 (Version None)
Quarter: 2005Q1

REPORT INFORMATION
  Report Type: 
  Country: None (occurrence: None)
  Receive Date: 20050318
  Receipt Date: 20050307
  Transmission Date: 20050727
  Serious: Yes (Life-Threatening)
  Sender: FDA-Public Use
  Company Number: MK200502-0240-1

PATIENT
  Age: 75 Year
  Sex: Female

DRUGS (1)
  1. OPT.320 75/100ML [Suspect]
     Indication: COMPUTERISED TOMOGRAM
     Dosage: 75 ML, ONCE
     Dates: start: 20050221, end: 20050221

REACTIONS (8)
  - DEPRESSED LEVEL OF CONSCIOUSNESS [None]
  - DYSPNOEA [None]
  - HAEMODIALYSIS [None]
  - INCREASED BRONCHIAL SECRETION [None]
  - LARYNGEAL OEDEMA [None]
  - NAUSEA [None]
  - OXYGEN SATURATION DECREASED [None]
  - PALLOR [None]
